FAERS Safety Report 22262820 (Version 3)
Quarter: 2023Q2

REPORT INFORMATION
  Report Type: Spontaneous
  Country: AU (occurrence: AU)
  Receive Date: 20230428
  Receipt Date: 20230526
  Transmission Date: 20230722
  Serious: Yes (Other)
  Sender: FDA-Public Use
  Company Number: AU-BEH-2023157820

PATIENT
  Age: 58 Year
  Sex: Female
  Weight: 47.3 kg

DRUGS (9)
  1. HUMAN IMMUNOGLOBULIN G [Suspect]
     Active Substance: HUMAN IMMUNOGLOBULIN G
     Indication: Immunodeficiency common variable
     Dosage: 20 GRAM, ONCE ONLY
     Route: 042
     Dates: start: 20230418, end: 20230418
  2. HUMAN IMMUNOGLOBULIN G [Suspect]
     Active Substance: HUMAN IMMUNOGLOBULIN G
     Indication: Haematological malignancy
  3. HUMAN IMMUNOGLOBULIN G [Suspect]
     Active Substance: HUMAN IMMUNOGLOBULIN G
     Indication: Allogenic stem cell transplantation
  4. AMLODIPINE [Concomitant]
     Active Substance: AMLODIPINE BESYLATE
     Dosage: 10 MILLIGRAM
     Route: 048
  5. VALACYCLOVIR HYDROCHLORIDE [Concomitant]
     Active Substance: VALACYCLOVIR HYDROCHLORIDE
     Dosage: 500 MILLIGRAM
     Route: 048
  6. BACTRIM [Concomitant]
     Active Substance: SULFAMETHOXAZOLE\TRIMETHOPRIM
     Dosage: 160/80 MG
     Route: 048
  7. PANTOPRAZOLE [Concomitant]
     Active Substance: PANTOPRAZOLE
     Dosage: 40 MILLIGRAM
     Route: 048
  8. PIPERACILLIN SODIUM\TAZOBACTAM SODIUM [Concomitant]
     Active Substance: PIPERACILLIN SODIUM\TAZOBACTAM SODIUM
     Indication: Illness
     Dosage: 4.5 GRAM, BID
     Route: 042
     Dates: start: 20230417, end: 20230426
  9. AZITHROMYCIN [Concomitant]
     Active Substance: AZITHROMYCIN
     Indication: Illness
     Dosage: 500 MILLIGRAM
     Route: 042
     Dates: start: 20230417, end: 20230421

REACTIONS (21)
  - Bronchospasm [Recovered/Resolved]
  - Oxygen saturation decreased [Recovering/Resolving]
  - Dyspnoea [Recovering/Resolving]
  - Chills [Recovering/Resolving]
  - Wheezing [Recovering/Resolving]
  - Pyrexia [Unknown]
  - Tachycardia [Unknown]
  - No adverse event [Unknown]
  - Off label use [Unknown]
  - Flushing [Recovered/Resolved]
  - Swelling face [Recovered/Resolved]
  - Chills [Recovered/Resolved]
  - Dizziness [Recovered/Resolved]
  - Syncope [Recovered/Resolved]
  - Syncope [Recovered/Resolved]
  - Nausea [Recovered/Resolved]
  - Paraesthesia oral [Recovered/Resolved]
  - Lip swelling [Recovered/Resolved]
  - Swollen tongue [Recovered/Resolved]
  - Pharyngeal swelling [Recovered/Resolved]
  - Cough [Recovered/Resolved]

NARRATIVE: CASE EVENT DATE: 20230418
